FAERS Safety Report 6132660-1 (Version None)
Quarter: 2009Q1

REPORT INFORMATION
  Report Type: 
  Country: None (occurrence: None)
  Receive Date: 20090324
  Receipt Date: 20090318
  Transmission Date: 20090719
  Serious: Yes (Other)
  Sender: FDA-Public Use
  Company Number: 188485USA

PATIENT
  Age: 20 Year
  Sex: Female
  Weight: 58.9676 kg

DRUGS (1)
  1. LEVONORGESTREL [Suspect]
     Indication: POST COITAL CONTRACEPTION
     Dosage: 1.5 MG (0.75 MG, 2 IN 1 D), ORAL
     Route: 048
     Dates: start: 20090108, end: 20090109

REACTIONS (3)
  - ABORTION SPONTANEOUS [None]
  - DRUG EXPOSURE DURING PREGNANCY [None]
  - PREGNANCY TEST URINE POSITIVE [None]
